FAERS Safety Report 8273600-9 (Version None)
Quarter: 2012Q2

REPORT INFORMATION
  Report Type: 
  Country: None (occurrence: None)
  Receive Date: 20120411
  Receipt Date: 20120130
  Transmission Date: 20120825
  Serious: No
  Sender: FDA-Public Use
  Company Number: US-TEVA-320090USA

PATIENT
  Sex: Female
  Weight: 50.848 kg

DRUGS (1)
  1. NUVIGIL [Suspect]
     Indication: FATIGUE
     Dosage: QAM
     Route: 048
     Dates: start: 20110901, end: 20111001

REACTIONS (1)
  - HEADACHE [None]
